FAERS Safety Report 13795944 (Version 3)
Quarter: 2017Q4

REPORT INFORMATION
  Report Type: Spontaneous
  Country: JP (occurrence: JP)
  Receive Date: 20170726
  Receipt Date: 20171019
  Transmission Date: 20180320
  Serious: Yes (Hospitalization)
  Sender: FDA-Public Use
  Company Number: JP-ALLERGAN-1731309US

PATIENT
  Age: 65 Year
  Sex: Male

DRUGS (2)
  1. LINACLOTIDE - BP [Suspect]
     Active Substance: LINACLOTIDE
     Dosage: 0.5 MG, QD
     Route: 048
  2. LINACLOTIDE - BP [Suspect]
     Active Substance: LINACLOTIDE
     Indication: IRRITABLE BOWEL SYNDROME
     Dosage: 0.5 MG, PRN, APROXIMATELY EVERY 2-3 DAYS
     Route: 048

REACTIONS (2)
  - Inappropriate schedule of drug administration [Unknown]
  - Intervertebral disc protrusion [Unknown]
